FAERS Safety Report 7076657-6 (Version None)
Quarter: 2010Q4

REPORT INFORMATION
  Report Type: 
  Country: None (occurrence: None)
  Receive Date: 20101101
  Receipt Date: 20101027
  Transmission Date: 20110411
  Serious: Yes (Hospitalization)
  Sender: FDA-Public Use
  Company Number: US-PFIZER INC-2010137374

PATIENT
  Age: 79 Year
  Sex: Male

DRUGS (7)
  1. ARGATROBAN [Suspect]
     Indication: HEPARIN-INDUCED THROMBOCYTOPENIA
     Dosage: 2 UG/KG/MIN
     Route: 042
     Dates: start: 20101025, end: 20101026
  2. FENTANYL [Concomitant]
  3. NEXIUM [Concomitant]
  4. HYDRALAZINE [Concomitant]
  5. REGLAN [Concomitant]
  6. ALBUTEROL [Concomitant]
  7. NOVOLOG [Concomitant]

REACTIONS (2)
  - ACTIVATED PARTIAL THROMBOPLASTIN TIME PROLONGED [None]
  - INTERNATIONAL NORMALISED RATIO INCREASED [None]
